FAERS Safety Report 5514559-4 (Version None)
Quarter: 2007Q4

REPORT INFORMATION
  Report Type: 
  Country: None (occurrence: None)
  Receive Date: 20071113
  Receipt Date: 20071109
  Transmission Date: 20080405
  Serious: Yes (Death, Hospitalization)
  Sender: FDA-Public Use
  Company Number: A0694267A

PATIENT
  Sex: Male

DRUGS (1)
  1. AVANDIA [Suspect]
     Route: 048
     Dates: start: 20010601, end: 20051121

REACTIONS (8)
  - ANXIETY [None]
  - CARDIO-RESPIRATORY ARREST [None]
  - DEPRESSION [None]
  - INJURY [None]
  - MENTAL DISORDER [None]
  - MYOCARDIAL INFARCTION [None]
  - PAIN [None]
  - STRESS [None]
